FAERS Safety Report 11348555 (Version 3)
Quarter: 2015Q3

REPORT INFORMATION
  Report Type: Spontaneous
  Country: US (occurrence: US)
  Receive Date: 20150806
  Receipt Date: 20150925
  Transmission Date: 20151125
  Serious: Yes (Hospitalization, Other)
  Sender: FDA-Public Use
  Company Number: US-GLAXOSMITHKLINE-US2015111923

PATIENT
  Age: 72 Year
  Sex: Male

DRUGS (18)
  1. ADVAIR DISKUS [Suspect]
     Active Substance: FLUTICASONE PROPIONATE\SALMETEROL XINAFOATE
     Indication: ASTHMA
     Dosage: 1 PUFF(S), BID
     Route: 055
     Dates: start: 2005
  2. LUMIGAN [Concomitant]
     Active Substance: BIMATOPROST
  3. NEXIUM [Concomitant]
     Active Substance: ESOMEPRAZOLE MAGNESIUM
  4. METFORMIN [Concomitant]
     Active Substance: METFORMIN HYDROCHLORIDE
  5. VENTOLIN HFA [Suspect]
     Active Substance: ALBUTEROL SULFATE
     Indication: ASTHMA
     Dosage: 2 PUFF(S), TID
     Route: 055
     Dates: start: 2005
  6. GABAPENTIN. [Concomitant]
     Active Substance: GABAPENTIN
  7. CLONAZEPAM. [Concomitant]
     Active Substance: CLONAZEPAM
  8. VITAMIN B12 [Concomitant]
     Active Substance: CYANOCOBALAMIN
  9. CITRUCEL [Concomitant]
     Active Substance: METHYLCELLULOSE (4000 MPA.S)
  10. CRESTOR [Concomitant]
     Active Substance: ROSUVASTATIN CALCIUM
  11. WARFARIN [Concomitant]
     Active Substance: WARFARIN
  12. OMEPRAZOLE. [Concomitant]
     Active Substance: OMEPRAZOLE
  13. LISINOPRIL. [Concomitant]
     Active Substance: LISINOPRIL
  14. ASA [Concomitant]
     Active Substance: ASPIRIN
  15. CALCITRIOL. [Concomitant]
     Active Substance: CALCITRIOL
  16. TOVIAZ [Concomitant]
     Active Substance: FESOTERODINE FUMARATE
  17. VITAMIN D2 [Concomitant]
     Active Substance: ERGOCALCIFEROL
  18. LORATADINE. [Concomitant]
     Active Substance: LORATADINE

REACTIONS (5)
  - Pneumonia [Unknown]
  - Aortic aneurysm [Unknown]
  - Aortic aneurysm repair [Unknown]
  - Hospitalisation [Unknown]
  - Tremor [Unknown]

NARRATIVE: CASE EVENT DATE: 2007
